FAERS Safety Report 9148768 (Version 1)
Quarter: 2013Q1

REPORT INFORMATION
  Report Type: Spontaneous
  Country: FR (occurrence: FR)
  Receive Date: 20130308
  Receipt Date: 20130308
  Transmission Date: 20140127
  Serious: Yes (Hospitalization)
  Sender: FDA-Public Use
  Company Number: FR-JNJFOC-20130215051

PATIENT
  Age: 37 Year
  Sex: Male

DRUGS (9)
  1. HALDOL [Suspect]
     Indication: PRODUCT USED FOR UNKNOWN INDICATION
     Route: 048
     Dates: start: 20121218, end: 20121218
  2. VENLAFAXINE [Suspect]
     Indication: PRODUCT USED FOR UNKNOWN INDICATION
     Route: 048
     Dates: start: 20121218, end: 20121218
  3. SULFARLEM [Suspect]
     Indication: PRODUCT USED FOR UNKNOWN INDICATION
     Route: 048
     Dates: start: 20121218, end: 20121218
  4. LOXAPAC [Suspect]
     Indication: PRODUCT USED FOR UNKNOWN INDICATION
     Route: 048
     Dates: start: 20121218, end: 20121218
  5. VALIUM [Concomitant]
     Route: 065
  6. LEPTICUR [Concomitant]
     Route: 065
  7. LIPANTHYL [Concomitant]
     Dosage: 160 - 1 PER DAY
     Route: 065
  8. MODECATE [Concomitant]
     Route: 065
  9. TRANSIPEG [Concomitant]
     Route: 065

REACTIONS (2)
  - Somnolence [Recovered/Resolved]
  - Intentional overdose [Recovered/Resolved]
